FAERS Safety Report 25206908 (Version 1)
Quarter: 2025Q2

REPORT INFORMATION
  Report Type: Report from Study
  Country: US (occurrence: US)
  Receive Date: 20250417
  Receipt Date: 20250417
  Transmission Date: 20250716
  Serious: Yes (Other)
  Sender: ABBVIE
  Company Number: US-ABBVIE-6225270

PATIENT
  Age: 80 Year
  Sex: Female

DRUGS (1)
  1. RINVOQ [Suspect]
     Active Substance: UPADACITINIB
     Indication: Rheumatoid arthritis
     Route: 048
     Dates: start: 202212

REACTIONS (4)
  - Coronary artery occlusion [Unknown]
  - Arteriosclerosis coronary artery [Unknown]
  - Post procedural swelling [Recovering/Resolving]
  - Post procedural contusion [Not Recovered/Not Resolved]
